FAERS Safety Report 18820346 (Version 1)
Quarter: 2021Q1

REPORT INFORMATION
  Report Type: Spontaneous
  Country: GB (occurrence: GB)
  Receive Date: 20210202
  Receipt Date: 20210202
  Transmission Date: 20210419
  Serious: Yes (Other)
  Sender: FDA-Public Use
  Company Number: GB-EMCURE PHARMACEUTICALS LTD-2021-EPL-000265

PATIENT
  Age: 53 Year
  Sex: Female
  Weight: 92.69 kg

DRUGS (15)
  1. NIFEDIPINE. [Suspect]
     Active Substance: NIFEDIPINE
     Indication: PRODUCT USED FOR UNKNOWN INDICATION
     Dosage: 5 MILLIGRAM CAPSULE
  2. CARBIMAZOLE [Concomitant]
     Active Substance: CARBIMAZOLE
     Dosage: 20 MILLIGRAM, BID
     Dates: start: 20210115
  3. SERTRALINE [Concomitant]
     Active Substance: SERTRALINE HYDROCHLORIDE
     Dosage: 50 MILLIGRAM , DAILY
     Dates: start: 20201026
  4. COCODAMOL [Concomitant]
     Active Substance: ACETAMINOPHEN\CODEINE PHOSPHATE
     Dosage: ONE OR TWO 8MG/500MG, QID
     Dates: start: 20210120
  5. INCRUSE ELLIPTA [Concomitant]
     Active Substance: UMECLIDINIUM BROMIDE
     Dosage: 1 DOSAGE FORM, 1 DOSE PER 1 D
     Route: 055
     Dates: start: 20201026
  6. PREDNISOLONE. [Concomitant]
     Active Substance: PREDNISOLONE
     Dosage: 30 MILLIGRAM , DAILY , IN THE MORNING FOR A WEEK
     Dates: start: 20201028
  7. VENTOLIN [Concomitant]
     Active Substance: ALBUTEROL SULFATE
     Dosage: 2 DOSAGE FORM, AS NECESSARY
     Route: 055
     Dates: start: 20201026
  8. CETIRIZINE [Concomitant]
     Active Substance: CETIRIZINE HYDROCHLORIDE
     Dosage: 10 MILLIGRAM , DAILY
     Dates: start: 20201026
  9. CO?AMOXICLAV [Concomitant]
     Active Substance: AMOXICILLIN\CLAVULANATE POTASSIUM
     Dosage: 1 DOSAGE FORM, TID , 500MG/125MG
     Dates: start: 20210106
  10. METFORMIN [Concomitant]
     Active Substance: METFORMIN HYDROCHLORIDE
     Dosage: 1000 MILLIGRAM, BID , TWO MORNING TWO EVENING
     Dates: start: 20201026
  11. FOSTAIR [Concomitant]
     Active Substance: BECLOMETHASONE\FORMOTEROL
     Dosage: 2 DOSAGE FORM, 2 DOSE PER 1 D , 2 DOSAGE FORM, 2 DOSE PER 1 D , 200MICROGRAMS/DOSE / 6MICROGRAMS/DOS
     Route: 055
     Dates: start: 20201026
  12. HYDROXOCOBALAMIN [Concomitant]
     Active Substance: HYDROXOCOBALAMIN
     Dosage: USE AS DIRECTED 1MG/1ML AMPOULES
     Dates: start: 20201022
  13. CERELLE [Concomitant]
     Active Substance: DESOGESTREL
     Dosage: 75 MICROGRAM , DAILY
     Dates: start: 20201214
  14. MONTELUKAST [Concomitant]
     Active Substance: MONTELUKAST SODIUM
     Dosage: 10 MILLIGRAM , DAILY , AT NIGHT
     Dates: start: 20201026
  15. CLARITHROMYCIN. [Concomitant]
     Active Substance: CLARITHROMYCIN
     Dosage: 500 MILLIGRAM , DAILY
     Dates: start: 20201028

REACTIONS (2)
  - Peripheral ischaemia [Not Recovered/Not Resolved]
  - Palpitations [Unknown]

NARRATIVE: CASE EVENT DATE: 20210119
